FAERS Safety Report 10046984 (Version 1)
Quarter: 2014Q1

REPORT INFORMATION
  Report Type: Spontaneous
  Country: US (occurrence: US)
  Receive Date: 20140331
  Receipt Date: 20140331
  Transmission Date: 20141002
  Serious: No
  Sender: FDA-Public Use
  Company Number: US-009507513-1403USA009961

PATIENT
  Sex: Male

DRUGS (14)
  1. PEGINTRON [Suspect]
     Indication: HEPATITIS C
     Dosage: UNK, QW
     Dates: start: 20090104, end: 20100301
  2. PEGINTRON [Suspect]
     Dosage: UNK, QW
     Dates: start: 20140306
  3. REBETOL [Suspect]
     Indication: HEPATITIS C
     Dosage: UNK, BID
     Route: 048
     Dates: start: 20090401, end: 20100301
  4. REBETOL [Suspect]
     Dosage: UNK, BID
     Route: 048
     Dates: start: 20140306
  5. SOVALDI [Concomitant]
  6. PRAVASTATIN SODIUM [Concomitant]
     Dosage: 40 MG, UNK
  7. CARVEDIL [Concomitant]
     Dosage: 3.25 MG, UNK
  8. CITALOPRAM [Concomitant]
     Dosage: 40 MG, UNK
  9. BUPROPION HCL [Concomitant]
     Dosage: 200 MG, UNK
  10. GABAPENTIN [Concomitant]
     Dosage: DOSE: 1200MG
  11. CLONAZEPAM [Concomitant]
     Dosage: 1 MG, UNK
  12. BENAZEPRIL HCL [Concomitant]
     Dosage: 5 MG, UNK
  13. METFORMIN [Concomitant]
  14. HYDROCODONE [Concomitant]
     Dosage: 10MG/350MG

REACTIONS (2)
  - Thinking abnormal [Unknown]
  - Weight decreased [Unknown]
